FAERS Safety Report 8053003-2 (Version None)
Quarter: 2011Q4

REPORT INFORMATION
  Report Type: 
  Country: None (occurrence: None)
  Receive Date: 20111212
  Receipt Date: 20110819
  Transmission Date: 20120403
  Serious: Yes (Other)
  Sender: FDA-Public Use
  Company Number: PHHY2011US57850

PATIENT
  Age: 28 Year
  Sex: Female

DRUGS (5)
  1. EXTAVIA [Suspect]
     Indication: MULTIPLE SCLEROSIS
     Dosage: 0.3 MG, QOD, SUBCUTANEOUS
     Route: 058
     Dates: start: 20081001
  2. NEURONTIN [Concomitant]
  3. ENABLEX [Concomitant]
  4. PILOCARPINE [Concomitant]
  5. ZANAFLEX [Concomitant]

REACTIONS (4)
  - INJECTION SITE WARMTH [None]
  - INJECTION SITE ERYTHEMA [None]
  - INJECTION SITE RASH [None]
  - INJECTION SITE MASS [None]
